FAERS Safety Report 5054527-2 (Version None)
Quarter: 2006Q3

REPORT INFORMATION
  Report Type: 
  Country: None (occurrence: None)
  Receive Date: 20060714
  Receipt Date: 20060703
  Transmission Date: 20061208
  Serious: Yes (Other)
  Sender: FDA-Public Use
  Company Number: 2006082971

PATIENT
  Sex: Female

DRUGS (3)
  1. XALATAN [Suspect]
     Indication: INTRAOCULAR PRESSURE INCREASED
     Dosage: OPHTHALMIC
     Route: 047
     Dates: start: 20010101
  2. COSOPT [Concomitant]
  3. ALPHAGAN [Concomitant]

REACTIONS (2)
  - DRUG INEFFECTIVE [None]
  - POOR QUALITY DRUG ADMINISTERED [None]
